FAERS Safety Report 5588952-8 (Version None)
Quarter: 2007Q4

REPORT INFORMATION
  Report Type: 
  Country: None (occurrence: None)
  Receive Date: 20071211
  Receipt Date: 20071107
  Transmission Date: 20080405
  Serious: No
  Sender: FDA-Public Use
  Company Number: 002#2#2007-00310

PATIENT
  Age: 71 Year
  Sex: Male
  Weight: 63.5036 kg

DRUGS (7)
  1. NEUPRO [Suspect]
     Indication: DYSKINESIA
     Dosage: 2MG/24H,1 IN 1 D,TRANSDERMAL ; 4MG/24H,1 IN 1 D,TRANSDERMAL ; 6MG/24H,1 IN 1 D,TRANSDERMAL
     Route: 062
     Dates: start: 20071001, end: 20071001
  2. NEUPRO [Suspect]
     Indication: DYSKINESIA
     Dosage: 2MG/24H,1 IN 1 D,TRANSDERMAL ; 4MG/24H,1 IN 1 D,TRANSDERMAL ; 6MG/24H,1 IN 1 D,TRANSDERMAL
     Route: 062
     Dates: start: 20071001, end: 20071001
  3. NEUPRO [Suspect]
     Indication: DYSKINESIA
     Dosage: 2MG/24H,1 IN 1 D,TRANSDERMAL ; 4MG/24H,1 IN 1 D,TRANSDERMAL ; 6MG/24H,1 IN 1 D,TRANSDERMAL
     Route: 062
     Dates: start: 20071101, end: 20071101
  4. PRILOSEC [Concomitant]
  5. VITAMIN D AND CALCIUM [Concomitant]
  6. MIRAPEX [Concomitant]
  7. SINEMET [Concomitant]

REACTIONS (1)
  - DYSKINESIA [None]
